FAERS Safety Report 13909798 (Version 1)
Quarter: 2017Q3

REPORT INFORMATION
  Report Type: Spontaneous
  Country: US (occurrence: US)
  Receive Date: 20170828
  Receipt Date: 20170828
  Transmission Date: 20171127
  Serious: Yes (Hospitalization, Other)
  Sender: FDA-Public Use
  Company Number: US-PURDUE-USA-2017-0140427

PATIENT
  Sex: Male

DRUGS (5)
  1. OXYCODONE HYDROCHLORIDE (SIMILAR TO NDA 22-272) [Suspect]
     Active Substance: OXYCODONE HYDROCHLORIDE
     Indication: PAIN
     Dosage: UNK
     Route: 048
  2. XANAX [Suspect]
     Active Substance: ALPRAZOLAM
     Dosage: 12 MG, DAILY
     Route: 065
  3. OXYCODONE HYDROCHLORIDE (SIMILAR TO NDA 22-272) [Suspect]
     Active Substance: OXYCODONE HYDROCHLORIDE
     Dosage: 10 MG, UNK
     Route: 048
  4. XANAX [Suspect]
     Active Substance: ALPRAZOLAM
     Dosage: 6 MG, DAILY
     Route: 065
  5. XANAX [Suspect]
     Active Substance: ALPRAZOLAM
     Indication: PRODUCT USED FOR UNKNOWN INDICATION
     Dosage: UNK
     Route: 065

REACTIONS (16)
  - Drug dependence [Recovered/Resolved]
  - Abnormal dreams [Unknown]
  - Movement disorder [Unknown]
  - Hallucination [Unknown]
  - Fatigue [Unknown]
  - Sleep disorder [Unknown]
  - Unevaluable event [Unknown]
  - Drug abuse [Recovered/Resolved]
  - Cold sweat [Unknown]
  - Seizure cluster [Unknown]
  - Drug detoxification [Unknown]
  - Cerebral disorder [Unknown]
  - Cerebral cyst [Unknown]
  - Seizure [Unknown]
  - Mental fatigue [Unknown]
  - Loss of personal independence in daily activities [Unknown]
